FAERS Safety Report 11877387 (Version 2)
Quarter: 2016Q1

REPORT INFORMATION
  Report Type: Report from Study
  Country: US (occurrence: US)
  Receive Date: 20151229
  Receipt Date: 20160125
  Transmission Date: 20160526
  Serious: Yes (Hospitalization, Other)
  Sender: FDA-Public Use
  Company Number: US-GILEAD-2015-0189793

PATIENT
  Age: 59 Year
  Sex: Male

DRUGS (1)
  1. IDELALISIB [Suspect]
     Active Substance: IDELALISIB
     Indication: B-CELL LYMPHOMA
     Dosage: 150 MG, BID
     Route: 048
     Dates: start: 20150921, end: 201510

REACTIONS (4)
  - Disease progression [Unknown]
  - Rash generalised [Unknown]
  - Pyrexia [Unknown]
  - Respiratory distress [Unknown]

NARRATIVE: CASE EVENT DATE: 20151201
